FAERS Safety Report 5065703-7 (Version None)
Quarter: 2006Q3

REPORT INFORMATION
  Report Type: 
  Country: None (occurrence: None)
  Receive Date: 20060731
  Receipt Date: 20060718
  Transmission Date: 20061208
  Serious: Yes (Disabling, Other)
  Sender: FDA-Public Use
  Company Number: GB-MERCK-0607GBR00082

PATIENT
  Age: 49 Year
  Sex: Male
  Weight: 72 kg

DRUGS (2)
  1. PROSCAR [Suspect]
     Indication: HYPERTENSION
     Route: 048
     Dates: start: 19830101, end: 20060310
  2. INDORAMIN [Concomitant]
     Indication: HYPERTENSION
     Route: 048
     Dates: start: 19830101, end: 20060310

REACTIONS (1)
  - DYSPHORIA [None]
